FAERS Safety Report 5820789-4 (Version None)
Quarter: 2008Q3

REPORT INFORMATION
  Report Type: 
  Country: None (occurrence: None)
  Receive Date: 20080724
  Receipt Date: 20080507
  Transmission Date: 20090109
  Serious: No
  Sender: FDA-Public Use
  Company Number: A0726792A

PATIENT
  Age: 32 Year
  Sex: Female

DRUGS (4)
  1. AVANDIA [Suspect]
     Dosage: 2MG TWICE PER DAY
     Route: 048
     Dates: start: 20010101
  2. LAMICTAL [Concomitant]
  3. KEPPRA [Concomitant]
  4. RANITIDINE HCL [Concomitant]

REACTIONS (3)
  - ABDOMINAL DISTENSION [None]
  - OEDEMA PERIPHERAL [None]
  - WEIGHT INCREASED [None]
